FAERS Safety Report 4643203-3 (Version None)
Quarter: 2005Q2

REPORT INFORMATION
  Report Type: 
  Country: None (occurrence: None)
  Receive Date: 20050421
  Receipt Date: 20050406
  Transmission Date: 20051028
  Serious: Yes (Hospitalization)
  Sender: FDA-Public Use
  Company Number: 10846

PATIENT
  Age: 78 Year
  Sex: Female

DRUGS (3)
  1. METHOTREXATE [Suspect]
     Indication: RHEUMATOID ARTHRITIS
     Dosage: PO
     Route: 048
  2. CELECOXIB [Concomitant]
  3. CORTICOSTEROIDS [Concomitant]

REACTIONS (3)
  - GAIT DISTURBANCE [None]
  - MALAISE [None]
  - MOBILITY DECREASED [None]
